FAERS Safety Report 9792112 (Version 1)
Quarter: 2014Q1

REPORT INFORMATION
  Report Type: Spontaneous
  Country: US (occurrence: US)
  Receive Date: 20140102
  Receipt Date: 20140102
  Transmission Date: 20141002
  Serious: No
  Sender: FDA-Public Use
  Company Number: US-009507513-1312USA012715

PATIENT
  Sex: Female

DRUGS (3)
  1. CLARITIN LIQUIGELS [Suspect]
     Indication: NASOPHARYNGITIS
     Dosage: UNK, UNKNOWN
     Route: 048
     Dates: start: 20131216
  2. CLARITIN LIQUIGELS [Suspect]
     Indication: RHINORRHOEA
  3. CLARITIN LIQUIGELS [Suspect]
     Indication: COUGH

REACTIONS (3)
  - Headache [Unknown]
  - Feeling abnormal [Unknown]
  - Somnolence [Unknown]
